FAERS Safety Report 5741370-1 (Version None)
Quarter: 2008Q2

REPORT INFORMATION
  Report Type: 
  Country: None (occurrence: None)
  Receive Date: 20080514
  Receipt Date: 20080508
  Transmission Date: 20081010
  Serious: Yes (Death, Life-Threatening, Hospitalization)
  Sender: FDA-Public Use
  Company Number: 062-C5013-07100860

PATIENT
  Age: 51 Year
  Sex: Female
  Weight: 47.5 kg

DRUGS (8)
  1. CC-5013 (LENALIDOMIDE) (CAPSULES) [Suspect]
     Indication: MULTIPLE MYELOMA
     Dosage: 25 MG, DAILY, ORAL
     Route: 048
     Dates: start: 20070524, end: 20070925
  2. DEXAMETHASONE TAB [Suspect]
     Indication: MULTIPLE MYELOMA
     Dosage: 40 MG, DAYS 1-4, CYCLE 5, ORAL
     Route: 048
     Dates: start: 20070524, end: 20070914
  3. POTASSIUM CHLORIDE [Concomitant]
  4. PANTOPRAZOL (PANTOPRAZOL) [Concomitant]
  5. AMITRIPTLINE HCL [Concomitant]
  6. ITRACONAZOLE [Concomitant]
  7. PROPIVERIN (PROPIVERIN) [Concomitant]
  8. DOXYCYCLIN (DOXYCYCLINE) [Concomitant]

REACTIONS (12)
  - ANAEMIA [None]
  - CONFUSIONAL STATE [None]
  - DEHYDRATION [None]
  - DISEASE PROGRESSION [None]
  - FALL [None]
  - GENERAL PHYSICAL HEALTH DETERIORATION [None]
  - HYPERCALCAEMIA [None]
  - HYPERKALAEMIA [None]
  - MULTIPLE MYELOMA [None]
  - PANCYTOPENIA [None]
  - STUPOR [None]
  - SUBARACHNOID HAEMORRHAGE [None]
